FAERS Safety Report 6102072-5 (Version None)
Quarter: 2009Q1

REPORT INFORMATION
  Report Type: 
  Country: None (occurrence: None)
  Receive Date: 20090304
  Receipt Date: 20090224
  Transmission Date: 20090719
  Serious: Yes (Death)
  Sender: FDA-Public Use
  Company Number: PL-PFIZER INC-2008018211

PATIENT

DRUGS (15)
  1. BLINDED *PLACEBO [Suspect]
     Indication: COLORECTAL CANCER
     Dosage: 37.5 MG, 1X/DAY
     Route: 048
     Dates: start: 20071031
  2. BLINDED SUNITINIB MALATE [Suspect]
     Indication: COLORECTAL CANCER
     Dosage: 37.5 MG, 1X/DAY
     Route: 048
     Dates: start: 20071031
  3. IRINOTECAN HCL [Suspect]
     Indication: COLORECTAL CANCER
     Dosage: 248 MG, EVERY 2 WEEKS
     Route: 042
     Dates: start: 20071031
  4. FLUOROURACIL [Suspect]
     Indication: COLORECTAL CANCER
     Dosage: 550 MG, EVERY 2 WEEKS
     Route: 040
     Dates: start: 20071031, end: 20080206
  5. FLUOROURACIL [Suspect]
     Dosage: 3302 MG, EVERY 2 WEEKS
     Route: 041
     Dates: start: 20071031, end: 20080208
  6. LEUCOVORIN CALCIUM [Suspect]
     Indication: COLORECTAL CANCER
     Dosage: 275 MG, EVERY 2 WEEKS
     Route: 042
     Dates: start: 20071031
  7. ONDANSETRON [Concomitant]
     Indication: PROPHYLAXIS
     Dates: start: 20080206
  8. METOCLOPRAMIDE [Concomitant]
     Indication: PROPHYLAXIS
     Dates: start: 20080206
  9. OMEPRAZOLE [Concomitant]
     Indication: PROPHYLAXIS
     Dates: start: 20080129
  10. FENTANYL [Concomitant]
     Indication: PAIN
     Dosage: 25 UG/HOUR
     Dates: start: 20080204
  11. KETOPROFEN [Concomitant]
     Indication: PAIN
     Dates: start: 20080204, end: 20080207
  12. METRONIDAZOLE [Concomitant]
     Indication: DIARRHOEA
     Dates: start: 20080207
  13. TIANEPTINE [Concomitant]
     Indication: DEPRESSION
     Dates: start: 20080204
  14. ATROPINE [Concomitant]
     Indication: PREMEDICATION
     Dates: start: 20080206, end: 20080206
  15. TRAMADOL HCL [Concomitant]
     Indication: PAIN
     Dates: start: 20080205

REACTIONS (1)
  - DEATH [None]
